FAERS Safety Report 6733763-0 (Version None)
Quarter: 2010Q2

REPORT INFORMATION
  Report Type: 
  Country: None (occurrence: None)
  Receive Date: 20100520
  Receipt Date: 20100514
  Transmission Date: 20101027
  Serious: Yes (Hospitalization)
  Sender: FDA-Public Use
  Company Number: PHHO2007DE20278

PATIENT
  Sex: Female
  Weight: 71 kg

DRUGS (5)
  1. CERTICAN [Suspect]
     Indication: LIVER TRANSPLANT
     Route: 048
     Dates: start: 20071130, end: 20071204
  2. CERTICAN [Suspect]
     Dosage: 3 MG, BID
     Route: 048
     Dates: start: 20071208
  3. CERTICAN [Suspect]
     Dosage: 3 MG, BID
     Route: 048
     Dates: start: 20080102
  4. PREDNISOLONE [Concomitant]
  5. CIPROFLOXACIN [Concomitant]

REACTIONS (4)
  - ABSCESS DRAINAGE [None]
  - LIVER ABSCESS [None]
  - PYREXIA [None]
  - STENT REMOVAL [None]
